FAERS Safety Report 4985918-3 (Version None)
Quarter: 2006Q2

REPORT INFORMATION
  Report Type: 
  Country: None (occurrence: None)
  Receive Date: 20060428
  Receipt Date: 20060419
  Transmission Date: 20061013
  Serious: Yes (Death)
  Sender: FDA-Public Use
  Company Number: NO-JNJFOC-20060404273

PATIENT
  Sex: Female

DRUGS (7)
  1. REMICADE [Suspect]
     Indication: RHEUMATOID ARTHRITIS
     Route: 042
  2. ENBREL [Suspect]
     Indication: RHEUMATOID ARTHRITIS
     Route: 058
  3. FLUTICASONE PROPIONATE [Concomitant]
     Indication: ASTHMA
     Route: 045
  4. METHOTREXATE [Concomitant]
     Indication: RHEUMATOID ARTHRITIS
  5. PREDNISOLONE [Concomitant]
     Indication: RHEUMATOID ARTHRITIS
  6. GLUCOSAMINE [Concomitant]
     Indication: OSTEOARTHRITIS
  7. FOLIC ACID [Concomitant]

REACTIONS (6)
  - ARTHRALGIA [None]
  - CHEST X-RAY ABNORMAL [None]
  - HYPERTENSION [None]
  - JOINT SWELLING [None]
  - OEDEMA PERIPHERAL [None]
  - SUDDEN DEATH [None]
